FAERS Safety Report 15058648 (Version 1)
Quarter: 2018Q2

REPORT INFORMATION
  Report Type: Spontaneous
  Country: US (occurrence: US)
  Receive Date: 20180604
  Receipt Date: 20180604
  Transmission Date: 20180711
  Serious: No
  Sender: FDA-Public Use
  Company Number: None

PATIENT
  Age: 32 Year
  Sex: Male
  Weight: 73.48 kg

DRUGS (3)
  1. FLOVENT [Concomitant]
     Active Substance: FLUTICASONE PROPIONATE
  2. DIAZEPAM. [Suspect]
     Active Substance: DIAZEPAM
     Indication: STRESS
  3. DIAZEPAM. [Suspect]
     Active Substance: DIAZEPAM
     Indication: ANXIETY
     Dosage: 2 PILLS DAILY 1@MORNING 1@NIGHT
     Route: 048
     Dates: start: 20180301, end: 20180501

REACTIONS (9)
  - Screaming [None]
  - Product substitution issue [None]
  - Paranoia [None]
  - Middle insomnia [None]
  - Pruritus [None]
  - Intentional product use issue [None]
  - Restlessness [None]
  - Tachyphrenia [None]
  - Insomnia [None]

NARRATIVE: CASE EVENT DATE: 20180301
